FAERS Safety Report 21039223 (Version 2)
Quarter: 2022Q3

REPORT INFORMATION
  Report Type: Report from Study
  Country: DE (occurrence: DE)
  Receive Date: 20220704
  Receipt Date: 20220718
  Transmission Date: 20221026
  Serious: Yes (Hospitalization, Other)
  Sender: FDA-Public Use
  Company Number: DE-BRISTOL-MYERS SQUIBB COMPANY-2022-063346

PATIENT
  Age: 54 Year
  Sex: Male

DRUGS (25)
  1. OPDIVO [Suspect]
     Active Substance: NIVOLUMAB
     Indication: Renal cell carcinoma
     Dosage: DATE OF LAST DOSE OF NIVOLUMAB  PRIOR TO ONSET OF ADVERSE EVENT: 13/NOV/2020
     Route: 042
     Dates: start: 20201113, end: 20210120
  2. OPDIVO [Suspect]
     Active Substance: NIVOLUMAB
     Dosage: DATE OF LAST DOSE OF NIVOLUMAB PRIOR TO ONSET OF ADVERSE EVENT: 03/DEC/2020
     Route: 042
     Dates: start: 20201113, end: 20210120
  3. OPDIVO [Suspect]
     Active Substance: NIVOLUMAB
     Dosage: DATE OF LAST DOSE OF NIVOLUMAB PRIOR TO ONSET OF ADVERSE EVENT 20/JAN/2021
     Route: 041
     Dates: start: 20201113, end: 20210120
  4. YERVOY [Suspect]
     Active Substance: IPILIMUMAB
     Indication: Renal cell carcinoma
     Dosage: DATE OF LAST DOSE OF IPILIMUMAB PRIOR TO ONSET OF ADVERSE EVENT: 13/NOV/2020
     Route: 042
     Dates: start: 20201113, end: 20210120
  5. YERVOY [Suspect]
     Active Substance: IPILIMUMAB
     Dosage: DATE OF LAST DOSE OF IPILIMUMAB PRIOR TO ONSET OF ADVERSE EVENT 03/DEC/2020
     Route: 042
     Dates: start: 20201113, end: 20210120
  6. YERVOY [Suspect]
     Active Substance: IPILIMUMAB
     Dosage: DATE OF LAST DOSE OF IPILIMUMAB PRIOR TO ONSET OF ADVERSE EVENT 20/JAN/2021
     Route: 041
     Dates: start: 20201113, end: 20210120
  7. ENOXAPARIN SODIUM [Concomitant]
     Active Substance: ENOXAPARIN SODIUM
     Indication: Prophylaxis
     Dosage: 0 - 0 - 1 (SYRINGE)
     Dates: end: 20210614
  8. ALENDRONIC ACID [Concomitant]
     Active Substance: ALENDRONIC ACID
     Indication: Neoplasm
     Dosage: 7. TAG (1 - 0 - 0 (TABL.))
     Dates: start: 20201113, end: 20210614
  9. POLYETHYLENE GLYCOLS [Concomitant]
     Active Substance: POLYETHYLENE GLYCOLS
     Indication: Neoplasm
     Dosage: 1 - 0 - 0 (BEUTEL) (SACHET)
     Route: 065
     Dates: end: 20210614
  10. PANTOPRAZOLE [Concomitant]
     Active Substance: PANTOPRAZOLE
     Indication: Prophylaxis
     Dosage: 1 - 0 - 0 (TABL.)
     Route: 065
     Dates: end: 20210614
  11. AMITRIPTYLINE HYDROCHLORIDE [Concomitant]
     Active Substance: AMITRIPTYLINE HYDROCHLORIDE
     Indication: Neoplasm
     Dosage: 0 - 0 - 0 - 2 (TABL.)
     Route: 065
     Dates: end: 20210614
  12. PREGABALIN [Concomitant]
     Active Substance: PREGABALIN
     Indication: Neoplasm
     Dosage: 1 - 0 - 1 (TABL.)
     Route: 065
     Dates: end: 20210614
  13. METAMIZOLE SODIUM [Concomitant]
     Active Substance: METAMIZOLE SODIUM
     Indication: Neoplasm
     Dosage: 2 - 2 - 2 - 2 (TABL.)
     Route: 065
     Dates: end: 20210614
  14. MORPHINE [Concomitant]
     Active Substance: MORPHINE
     Indication: Neoplasm
     Dosage: AS NEEDED UP TO 4X DAILY
     Route: 065
     Dates: end: 20210614
  15. MORPHINE SULFATE [Concomitant]
     Active Substance: MORPHINE SULFATE
     Indication: Neoplasm
     Dosage: 5 - 5 - 5 (TABL.).
     Route: 065
     Dates: end: 20210518
  16. ZOPICLONE [Concomitant]
     Active Substance: ZOPICLONE
     Indication: Neoplasm
     Dosage: (0- 0 - 0 - 1 (TABL.))
     Route: 065
     Dates: end: 20210614
  17. DENOSUMAB [Concomitant]
     Active Substance: DENOSUMAB
     Indication: Neoplasm
     Dosage: FREQUENCY: ONCE
     Route: 065
     Dates: start: 20210318, end: 20210318
  18. CAPROS AKUT [Concomitant]
     Indication: Neoplasm
     Dosage: 2 - 2 - 2 (KAPS.
     Route: 065
     Dates: start: 20210518, end: 20210518
  19. Dexamethas [Concomitant]
     Dosage: 0,5 - 0 - 0 (TABL.)
     Route: 065
     Dates: start: 20210518, end: 20210614
  20. DIFLUCAN [Concomitant]
     Active Substance: FLUCONAZOLE
     Indication: Neoplasm
     Dosage: 40 MG/ML, 2,5 - 0 - 0 ML
     Route: 065
     Dates: start: 20210518, end: 20210614
  21. ETOD [ETORICOXIB] [Concomitant]
     Indication: Neoplasm
     Dosage: 1 - 0 - 0 (TABL.
     Route: 065
     Dates: start: 20200518, end: 20200614
  22. NALOXEGOL OXALATE [Concomitant]
     Active Substance: NALOXEGOL OXALATE
     Indication: Neoplasm
     Dosage: 1 - 0 - 0 (TABL.)
     Route: 065
     Dates: start: 20210518, end: 20210614
  23. SERENID [OXAZEPAM] [Concomitant]
     Indication: Neoplasm
     Dosage: 0 - 0 - 0 - 1 (TABL.
     Route: 065
     Dates: start: 20210518, end: 20210614
  24. OXYCODONE HYDROCHLORIDE [Concomitant]
     Active Substance: OXYCODONE HYDROCHLORIDE
     Indication: Neoplasm
     Dosage: EI BEDARF (1- 1 - 1 - 1 (KAP
     Route: 065
     Dates: start: 20210518, end: 20210614
  25. OXYCODONE HYDROCHLORIDE [Concomitant]
     Active Substance: OXYCODONE HYDROCHLORIDE
     Dosage: 1 - 1 - 1 (TABL.)
     Route: 065
     Dates: start: 20210518, end: 20210614

REACTIONS (5)
  - Impaired healing [Recovered/Resolved]
  - Cachexia [Not Recovered/Not Resolved]
  - Malignant neoplasm progression [Unknown]
  - Xeroderma [Recovered/Resolved]
  - Decreased appetite [Unknown]

NARRATIVE: CASE EVENT DATE: 20201126
